FAERS Safety Report 20519176 (Version 2)
Quarter: 2022Q4

REPORT INFORMATION
  Report Type: Report from Study
  Country: US (occurrence: US)
  Receive Date: 20220225
  Receipt Date: 20221013
  Transmission Date: 20230113
  Serious: Yes (Life-Threatening, Hospitalization, Other)
  Sender: FDA-Public Use
  Company Number: US-BRISTOL-MYERS SQUIBB COMPANY-BMS-2022-020059

PATIENT
  Age: 61 Year
  Sex: Female
  Weight: 66.9 kg

DRUGS (8)
  1. NIVOLUMAB [Suspect]
     Active Substance: NIVOLUMAB
     Indication: Small cell lung cancer recurrent
     Dosage: 1 MILLIGRAM/KILOGRAM, Q3WK
     Route: 042
     Dates: start: 20220207, end: 20220207
  2. NIVOLUMAB [Suspect]
     Active Substance: NIVOLUMAB
     Route: 042
     Dates: end: 20220224
  3. IPILIMUMAB [Suspect]
     Active Substance: IPILIMUMAB
     Indication: Small cell lung cancer recurrent
     Dosage: 3 MILLIGRAM/KILOGRAM, Q3WK
     Route: 042
     Dates: start: 20220207, end: 20220207
  4. IPILIMUMAB [Suspect]
     Active Substance: IPILIMUMAB
     Route: 042
     Dates: end: 20220224
  5. PLINABULIN [Suspect]
     Active Substance: PLINABULIN
     Indication: Small cell lung cancer recurrent
     Dosage: 30 MILLIGRAM/KILOGRAM, Q3WK
     Route: 042
     Dates: start: 20220207, end: 20220207
  6. PLINABULIN [Suspect]
     Active Substance: PLINABULIN
     Route: 042
     Dates: end: 20220224
  7. ELIQUIS [Concomitant]
     Active Substance: APIXABAN
     Indication: Splenic thrombosis
     Dosage: 1 TAB
     Route: 048
     Dates: start: 202103
  8. ELIQUIS [Concomitant]
     Active Substance: APIXABAN
     Indication: Thrombosis

REACTIONS (5)
  - Pancytopenia [Recovered/Resolved]
  - Small intestinal obstruction [Recovered/Resolved]
  - Escherichia sepsis [Recovered/Resolved]
  - Acute hepatic failure [Recovered/Resolved]
  - Shock [Recovered/Resolved]

NARRATIVE: CASE EVENT DATE: 20220208
